FAERS Safety Report 8444352-4 (Version None)
Quarter: 2012Q2

REPORT INFORMATION
  Report Type: 
  Country: None (occurrence: None)
  Receive Date: 20120613
  Receipt Date: 20120613
  Transmission Date: 20120825
  Serious: Yes (Hospitalization, Other)
  Sender: FDA-Public Use
  Company Number: None

PATIENT
  Sex: Female
  Weight: 82.5547 kg

DRUGS (1)
  1. IMMUNE GLOBULIN NOS [Suspect]
     Dosage: 30 GM, QD X 5 D Q MONTH, IV
     Route: 042
     Dates: start: 20120530, end: 20120607

REACTIONS (7)
  - BLOOD PRESSURE INCREASED [None]
  - PRURITUS [None]
  - OEDEMA PERIPHERAL [None]
  - RASH [None]
  - PARAESTHESIA [None]
  - CHEST PAIN [None]
  - INFUSION RELATED REACTION [None]
